FAERS Safety Report 4694033-8 (Version None)
Quarter: 2005Q2

REPORT INFORMATION
  Report Type: 
  Country: None (occurrence: None)
  Receive Date: 20050616
  Receipt Date: 20050607
  Transmission Date: 20051028
  Serious: Yes (Death)
  Sender: FDA-Public Use
  Company Number: 2005-06-0650

PATIENT
  Age: 44 Year
  Sex: Female

DRUGS (6)
  1. PEG-INTRON [Suspect]
     Indication: HEPATITIS C
     Dates: start: 20040908
  2. RIBAVIRIN [Suspect]
     Indication: HEPATITIS C
     Dates: start: 20040908
  3. LASIX TABELTS [Concomitant]
  4. PROZAC [Concomitant]
  5. SPIRONOLACTONE [Concomitant]
  6. ZINC SULFATE CAPSULES [Concomitant]

REACTIONS (1)
  - UNEVALUABLE EVENT [None]
